FAERS Safety Report 4457073-X (Version None)
Quarter: 2004Q3

REPORT INFORMATION
  Report Type: 
  Country: None (occurrence: None)
  Receive Date: 20040923
  Receipt Date: 20040917
  Transmission Date: 20050211
  Serious: Yes (Death, Hospitalization)
  Sender: FDA-Public Use
  Company Number: US-ABBOTT-04P-163-0273804-00

PATIENT
  Age: 15 Year
  Sex: Male

DRUGS (3)
  1. DEPAKOTE [Suspect]
     Indication: AFFECTIVE DISORDER
     Dosage: DOSE ADJUSTED
  2. DEPAKOTE [Suspect]
     Dates: start: 19990101
  3. OBETROL [Concomitant]
     Indication: DRUG USE FOR UNKNOWN INDICATION

REACTIONS (3)
  - ASTHMA [None]
  - PAIN [None]
  - PAROSMIA [None]
